FAERS Safety Report 7685762-2 (Version None)
Quarter: 2011Q3

REPORT INFORMATION
  Report Type: 
  Country: None (occurrence: None)
  Receive Date: 20110815
  Receipt Date: 20110815
  Transmission Date: 20111222
  Serious: Yes (Death)
  Sender: FDA-Public Use
  Company Number: None

PATIENT
  Age: 75 Year
  Sex: Female
  Weight: 49.8 kg

DRUGS (1)
  1. ARIXTRA [Suspect]
     Indication: THROMBOSIS
     Dosage: 5 MG
     Route: 058

REACTIONS (8)
  - SUBARACHNOID HAEMORRHAGE [None]
  - HAEMOGLOBIN DECREASED [None]
  - BRAIN MIDLINE SHIFT [None]
  - HAEMATOCRIT DECREASED [None]
  - CEREBRAL INFARCTION [None]
  - FALL [None]
  - INTRACRANIAL HAEMATOMA [None]
  - BRAIN HERNIATION [None]
